FAERS Safety Report 9101894 (Version 2)
Quarter: 2014Q2

REPORT INFORMATION
  Report Type: Spontaneous
  Country: US (occurrence: US)
  Receive Date: 20130218
  Receipt Date: 20140617
  Transmission Date: 20141212
  Serious: Yes (Other)
  Sender: FDA-Public Use
  Company Number: PHHY2013US014024

PATIENT
  Age: 41 Year
  Sex: Male

DRUGS (18)
  1. ROPINIROLE HCL [Suspect]
     Indication: PARKINSON^S DISEASE
     Dosage: 1 MG, BID
     Route: 048
  2. ROPINIROLE HCL [Suspect]
     Dosage: 3 MG, BID
     Route: 048
  3. ROPINIROLE HCL [Suspect]
     Dosage: 3 MG, TID
     Route: 048
  4. ROPINIROLE HCL [Suspect]
     Dosage: 0.5 MG, BID
     Route: 048
  5. ROPINIROLE HCL [Suspect]
     Dosage: 1 MG, BID
     Route: 048
  6. VENLAFAXINE [Concomitant]
     Dosage: 150 MG, BID
  7. ZOLPIDEM [Concomitant]
     Dosage: 10 MG, QHS
  8. CLONAZEPAM [Concomitant]
     Dosage: 1 MG, BID
  9. CARBIDOPA AND LEVODOPA [Concomitant]
     Indication: PARKINSON^S DISEASE
     Dosage: 1 DF, Q3H
  10. ENTACAPONE [Concomitant]
     Indication: PARKINSON^S DISEASE
     Dosage: 200 MG, Q5H
  11. DONEPEZIL [Concomitant]
     Indication: PARKINSON^S DISEASE
     Dosage: 10 MG, QHS
  12. TRAMADOL [Concomitant]
  13. LOSARTAN [Concomitant]
  14. FLUNISOLIDE [Concomitant]
  15. ALBUTEROL [Concomitant]
  16. CETIRIZINE [Concomitant]
  17. FORMOTEROL [Concomitant]
  18. MOMETASONE [Concomitant]

REACTIONS (10)
  - Increased appetite [Recovered/Resolved]
  - Weight increased [Recovered/Resolved]
  - Obsessive-compulsive personality disorder [Recovered/Resolved]
  - Impulsive behaviour [Recovered/Resolved]
  - Libido increased [Recovered/Resolved]
  - Pathological gambling [Recovered/Resolved]
  - Parkinsonism [Recovered/Resolved]
  - Memory impairment [Recovering/Resolving]
  - Dyskinesia [Recovering/Resolving]
  - Dysphagia [Recovering/Resolving]
